FAERS Safety Report 6555205-0 (Version None)
Quarter: 2010Q1

REPORT INFORMATION
  Report Type: 
  Country: None (occurrence: None)
  Receive Date: 20100128
  Receipt Date: 20100115
  Transmission Date: 20100710
  Serious: Yes (Other)
  Sender: FDA-Public Use
  Company Number: GB-PFIZER INC-2007065669

PATIENT
  Age: 31 Year
  Sex: Female

DRUGS (3)
  1. METHYLPREDNISOLONE AND METHYLPREDNISOLONE ACETATE AND METHYLPREDNISOLO [Suspect]
     Indication: T-CELL LYMPHOMA REFRACTORY
     Dosage: 1 G, CYCLIC
  2. CISPLATIN [Suspect]
     Indication: T-CELL LYMPHOMA REFRACTORY
     Dosage: 100 MG/M2, CYCLIC
  3. GEMCITABINE [Suspect]
     Indication: T-CELL LYMPHOMA REFRACTORY
     Dosage: 1000 MG/M2, CYCLIC

REACTIONS (2)
  - DRUG TOXICITY [None]
  - NEUTROPENIA [None]
